FAERS Safety Report 7001173-7 (Version None)
Quarter: 2010Q3

REPORT INFORMATION
  Report Type: 
  Country: None (occurrence: None)
  Receive Date: 20100920
  Receipt Date: 20070712
  Transmission Date: 20110219
  Serious: No
  Sender: FDA-Public Use
  Company Number: US-ASTRAZENECA-2009SE11556

PATIENT
  Age: 14185 Day
  Sex: Male
  Weight: 108 kg

DRUGS (2)
  1. SEROQUEL [Suspect]
     Route: 048
     Dates: start: 20000713
  2. RISPERDAL [Concomitant]
     Indication: DYSPHONIA
     Route: 048
     Dates: start: 20030804

REACTIONS (15)
  - AGITATION [None]
  - ALCOHOL ABUSE [None]
  - ANTISOCIAL PERSONALITY DISORDER [None]
  - ANXIETY [None]
  - DRUG ABUSE [None]
  - DRUG DEPENDENCE [None]
  - HALLUCINATION, AUDITORY [None]
  - HOMICIDAL IDEATION [None]
  - JOINT INJURY [None]
  - MAJOR DEPRESSION [None]
  - MANIA [None]
  - OBESITY [None]
  - PSYCHOTIC DISORDER [None]
  - SCHIZOAFFECTIVE DISORDER BIPOLAR TYPE [None]
  - SLEEP DISORDER [None]
